FAERS Safety Report 5930896-3 (Version None)
Quarter: 2008Q4

REPORT INFORMATION
  Report Type: 
  Country: None (occurrence: None)
  Receive Date: 20081027
  Receipt Date: 20081020
  Transmission Date: 20090506
  Serious: Yes (Death, Hospitalization, Other)
  Sender: FDA-Public Use
  Company Number: US-CELGENEUS-163-21880-08080959

PATIENT
  Sex: Female
  Weight: 41.314 kg

DRUGS (2)
  1. REVLIMID [Suspect]
     Indication: MULTIPLE MYELOMA
     Route: 048
     Dates: start: 20061201
  2. REVLIMID [Suspect]

REACTIONS (6)
  - BRONCHIAL OBSTRUCTION [None]
  - CLOSTRIDIUM DIFFICILE COLITIS [None]
  - HAEMOGLOBIN DECREASED [None]
  - INFECTION [None]
  - LUNG NEOPLASM MALIGNANT [None]
  - MALIGNANT PLEURAL EFFUSION [None]
